FAERS Safety Report 4294017-8 (Version None)
Quarter: 2004Q1

REPORT INFORMATION
  Report Type: 
  Country: None (occurrence: None)
  Receive Date: 20040211
  Receipt Date: 20040127
  Transmission Date: 20041129
  Serious: Yes (Hospitalization)
  Sender: FDA-Public Use
  Company Number: USA040157756

PATIENT
  Age: 75 Year
  Sex: Female

DRUGS (5)
  1. FORTEO [Suspect]
     Indication: OSTEOPOROSIS
     Dates: start: 20031001, end: 20031107
  2. MULTI-VITAMIN [Concomitant]
  3. LASIX [Concomitant]
  4. CORTEF [Concomitant]
  5. CALCIUM [Concomitant]

REACTIONS (5)
  - ANGIOPATHY [None]
  - FEELING ABNORMAL [None]
  - INFLAMMATION [None]
  - PAIN IN EXTREMITY [None]
  - PERFORATED ULCER [None]
